FAERS Safety Report 10276158 (Version 3)
Quarter: 2014Q4

REPORT INFORMATION
  Report Type: Spontaneous
  Country: JP (occurrence: JP)
  Receive Date: 20140703
  Receipt Date: 20141001
  Transmission Date: 20150528
  Serious: Yes (Other)
  Sender: FDA-Public Use
  Company Number: JP-MALLINCKRODT-T201402660

PATIENT
  Age: 81 Year
  Sex: Female
  Weight: 38.5 kg

DRUGS (37)
  1. OFIRMEV [Suspect]
     Active Substance: ACETAMINOPHEN
     Dosage: 1000 MG
     Route: 042
     Dates: start: 20140328, end: 20140328
  2. OFIRMEV [Suspect]
     Active Substance: ACETAMINOPHEN
     Dosage: 1000 MG
     Route: 042
     Dates: start: 20140401, end: 20140402
  3. OFIRMEV [Suspect]
     Active Substance: ACETAMINOPHEN
     Dosage: 1000 MG
     Route: 042
     Dates: start: 20140507, end: 20140507
  4. OFIRMEV [Suspect]
     Active Substance: ACETAMINOPHEN
     Dosage: 1000 MG
     Route: 042
     Dates: start: 20140319, end: 20140319
  5. OFIRMEV [Suspect]
     Active Substance: ACETAMINOPHEN
     Dosage: 1000 MG
     Route: 042
     Dates: start: 20140428, end: 20140428
  6. OFIRMEV [Suspect]
     Active Substance: ACETAMINOPHEN
     Dosage: 1000 MG
     Route: 042
     Dates: start: 20140430, end: 20140430
  7. OFIRMEV [Suspect]
     Active Substance: ACETAMINOPHEN
     Dosage: 1000 MG
     Route: 042
     Dates: start: 20140509, end: 20140510
  8. EDIROL [Concomitant]
     Active Substance: ELDECALCITOL
     Dosage: 0.75 MG, UNK
     Route: 048
  9. LYRICA [Concomitant]
     Active Substance: PREGABALIN
     Dosage: 100 MG, UNK
     Route: 048
  10. OFIRMEV [Suspect]
     Active Substance: ACETAMINOPHEN
     Indication: ANALGESIC THERAPY
     Dosage: 1000 MG
     Route: 042
     Dates: start: 20140314, end: 20140515
  11. OFIRMEV [Suspect]
     Active Substance: ACETAMINOPHEN
     Dosage: 1000 MG
     Route: 042
     Dates: start: 20140331, end: 20140331
  12. OFIRMEV [Suspect]
     Active Substance: ACETAMINOPHEN
     Dosage: 1000 MG
     Route: 042
     Dates: start: 20140423, end: 20140423
  13. OFIRMEV [Suspect]
     Active Substance: ACETAMINOPHEN
     Dosage: 1000 MG
     Route: 042
     Dates: start: 20140324, end: 20140324
  14. NEXIUM [Concomitant]
     Active Substance: ESOMEPRAZOLE MAGNESIUM
     Dosage: 20 MG, UNK
     Route: 048
  15. GLAKAY [Concomitant]
     Dosage: 15 MG, UNK
     Route: 048
  16. OFIRMEV [Suspect]
     Active Substance: ACETAMINOPHEN
     Dosage: 1000 MG
     Route: 042
     Dates: start: 20140322, end: 20140322
  17. OFIRMEV [Suspect]
     Active Substance: ACETAMINOPHEN
     Dosage: 1000 MG
     Route: 042
     Dates: start: 20140404, end: 20140404
  18. OFIRMEV [Suspect]
     Active Substance: ACETAMINOPHEN
     Dosage: 1000 MG
     Route: 042
     Dates: start: 20140502, end: 20140502
  19. OFIRMEV [Suspect]
     Active Substance: ACETAMINOPHEN
     Dosage: 1000 MG
     Route: 042
     Dates: start: 20140514, end: 20140514
  20. OFIRMEV [Suspect]
     Active Substance: ACETAMINOPHEN
     Dosage: 1000 MG
     Route: 042
     Dates: start: 20140516, end: 20140516
  21. LOXONIN [Concomitant]
     Active Substance: LOXOPROFEN SODIUM
     Dosage: 180 MG, UNK
     Route: 048
  22. OFIRMEV [Suspect]
     Active Substance: ACETAMINOPHEN
     Dosage: 1000 MG
     Route: 042
     Dates: start: 20140317, end: 20140317
  23. OFIRMEV [Suspect]
     Active Substance: ACETAMINOPHEN
     Dosage: 1000 MG
     Route: 042
     Dates: start: 20140416, end: 20140416
  24. OFIRMEV [Suspect]
     Active Substance: ACETAMINOPHEN
     Dosage: 1000 MG
     Route: 042
     Dates: start: 20140421, end: 20140421
  25. OFIRMEV [Suspect]
     Active Substance: ACETAMINOPHEN
     Dosage: 1000 MG
     Route: 042
     Dates: start: 20140409, end: 20140409
  26. OFIRMEV [Suspect]
     Active Substance: ACETAMINOPHEN
     Dosage: 1000 MG
     Route: 042
     Dates: start: 20140411, end: 20140411
  27. OFIRMEV [Suspect]
     Active Substance: ACETAMINOPHEN
     Dosage: 1000 MG
     Route: 042
     Dates: start: 20140414, end: 20140414
  28. EBRANTIL [Concomitant]
     Active Substance: URAPIDIL
     Dosage: 30 MG, UNK
     Route: 048
  29. HITOCOBAMIN M [Concomitant]
     Dosage: 500 ?G, UNK
     Route: 042
  30. OFIRMEV [Suspect]
     Active Substance: ACETAMINOPHEN
     Dosage: 1000 MG
     Route: 042
     Dates: start: 20140407, end: 20140407
  31. OFIRMEV [Suspect]
     Active Substance: ACETAMINOPHEN
     Dosage: 1000 MG
     Route: 042
     Dates: start: 20140418, end: 20140418
  32. OFIRMEV [Suspect]
     Active Substance: ACETAMINOPHEN
     Dosage: 1000 MG
     Route: 042
     Dates: start: 20140425, end: 20140425
  33. OFIRMEV [Suspect]
     Active Substance: ACETAMINOPHEN
     Dosage: 1000 MG
     Route: 042
     Dates: start: 20140512, end: 20140512
  34. OFIRMEV [Suspect]
     Active Substance: ACETAMINOPHEN
     Dosage: 1000 MG
     Route: 042
     Dates: start: 20140519, end: 20140519
  35. AMLODIN [Concomitant]
     Active Substance: AMLODIPINE BESYLATE
     Dosage: 5 MG, UNK
     Route: 048
  36. NEUROTROPIN [Concomitant]
     Active Substance: NEUROTROPIN
     Indication: ANALGESIC THERAPY
     Route: 042
  37. BENZALIN [Concomitant]
     Active Substance: NITRAZEPAM
     Dosage: 5 MG, UNK
     Route: 048

REACTIONS (1)
  - Interstitial lung disease [Recovering/Resolving]

NARRATIVE: CASE EVENT DATE: 20140521
